FAERS Safety Report 7055374-2 (Version None)
Quarter: 2010Q4

REPORT INFORMATION
  Report Type: 
  Country: None (occurrence: None)
  Receive Date: 20101021
  Receipt Date: 20101012
  Transmission Date: 20110411
  Serious: Yes (Other)
  Sender: FDA-Public Use
  Company Number: PHHY2010JP68732

PATIENT
  Age: 22 Year
  Sex: Female

DRUGS (10)
  1. TEGRETOL [Suspect]
     Indication: EPILEPSY
     Dosage: UNK
     Route: 048
  2. VALPROATE SODIUM [Concomitant]
     Indication: EPILEPSY
     Dosage: UNK
     Route: 048
  3. CLOBAZAM [Concomitant]
     Indication: EPILEPSY
     Dosage: UNK
     Route: 048
  4. CLONAZEPAM [Concomitant]
     Indication: EPILEPSY
     Dosage: UNK
     Route: 048
  5. ZONISAMIDE [Concomitant]
     Indication: EPILEPSY
     Dosage: UNK
     Route: 048
  6. PHENYTOIN [Concomitant]
     Indication: EPILEPSY
     Dosage: UNK
     Route: 048
  7. DIAMOX SRC [Concomitant]
     Indication: EPILEPSY
     Dosage: UNK
     Route: 048
  8. GABAPENTIN [Concomitant]
     Indication: EPILEPSY
     Dosage: UNK
     Route: 048
  9. TOPIRAMATE [Concomitant]
     Indication: EPILEPSY
     Dosage: UNK
     Route: 048
  10. LAMOTRIGINE [Concomitant]
     Indication: EPILEPSY
     Dosage: UNK
     Route: 048
     Dates: start: 20090101

REACTIONS (4)
  - ATONIC SEIZURES [None]
  - GRAND MAL CONVULSION [None]
  - HALLUCINATION, AUDITORY [None]
  - PARANOIA [None]
